FAERS Safety Report 4761516-1 (Version None)
Quarter: 2005Q3

REPORT INFORMATION
  Report Type: 
  Country: None (occurrence: None)
  Receive Date: 20050906
  Receipt Date: 20050810
  Transmission Date: 20060218
  Serious: Yes (Hospitalization)
  Sender: FDA-Public Use
  Company Number: DE-GLAXOSMITHKLINE-D0047269A

PATIENT
  Age: 43 Year
  Sex: Female
  Weight: 98.5 kg

DRUGS (1)
  1. ZEFFIX [Suspect]
     Dosage: 100MG PER DAY
     Route: 048
     Dates: start: 20030101

REACTIONS (2)
  - CARDIAC FAILURE [None]
  - IRON DEFICIENCY ANAEMIA [None]
